FAERS Safety Report 4674690-2 (Version None)
Quarter: 2005Q2

REPORT INFORMATION
  Report Type: 
  Country: None (occurrence: None)
  Receive Date: 20050526
  Receipt Date: 20050516
  Transmission Date: 20051028
  Serious: Yes (Disabling)
  Sender: FDA-Public Use
  Company Number: FR-BRISTOL-MYERS SQUIBB COMPANY-12971172

PATIENT
  Age: 52 Year
  Sex: Female

DRUGS (4)
  1. VIDEX [Suspect]
     Route: 048
     Dates: start: 20020101
  2. EPIVIR [Suspect]
     Route: 048
     Dates: start: 19990101
  3. VIRAMUNE [Suspect]
     Route: 048
     Dates: start: 19990101
  4. LIPANTHYL [Concomitant]

REACTIONS (1)
  - HYPOACUSIS [None]
